FAERS Safety Report 21286304 (Version 1)
Quarter: 2022Q3

REPORT INFORMATION
  Report Type: Spontaneous
  Country: CN (occurrence: CN)
  Receive Date: 20220902
  Receipt Date: 20220902
  Transmission Date: 20221027
  Serious: Yes (Other)
  Sender: FDA-Public Use
  Company Number: CN-PFIZER INC-PV202200051963

PATIENT
  Age: 33 Year
  Sex: Female

DRUGS (1)
  1. METHOTREXATE SODIUM [Suspect]
     Active Substance: METHOTREXATE SODIUM
     Indication: Therapeutic procedure
     Dosage: 86 MG, 1X/DAY
     Route: 030
     Dates: start: 20220523, end: 20220523

REACTIONS (5)
  - Drug effect less than expected [Unknown]
  - Vomiting [Recovering/Resolving]
  - Noninfective gingivitis [Recovering/Resolving]
  - Discomfort [Recovering/Resolving]
  - Nausea [Recovering/Resolving]

NARRATIVE: CASE EVENT DATE: 20220523
